FAERS Safety Report 8617835 (Version 2)
Quarter: 2013Q1

REPORT INFORMATION
  Report Type: Spontaneous
  Country: FR (occurrence: FR)
  Receive Date: 20120615
  Receipt Date: 20130326
  Transmission Date: 20140127
  Serious: Yes (Hospitalization, Other)
  Sender: FDA-Public Use
  Company Number: FR-JNJFOC-20120603661

PATIENT
  Age: 51 Year
  Sex: Male
  Weight: 80 kg

DRUGS (11)
  1. REMICADE [Suspect]
     Indication: ANKYLOSING SPONDYLITIS
     Route: 042
     Dates: start: 201206
  2. REMICADE [Suspect]
     Indication: ANKYLOSING SPONDYLITIS
     Route: 042
     Dates: start: 201105, end: 201204
  3. MONOALGIC [Concomitant]
     Indication: PAIN
     Route: 065
  4. PARACETAMOL [Concomitant]
     Indication: PAIN
     Dosage: THRICE
     Route: 048
  5. LYRICA [Concomitant]
     Indication: NEURALGIA
     Dosage: 100-0-150
     Route: 048
  6. SEROPLEX [Concomitant]
     Indication: DEPRESSION
     Dosage: 10 (DOSE UNSPECIFIED), 1DF PER DAY
     Route: 048
  7. PROFENID [Concomitant]
     Dosage: 100, TWICE
     Route: 065
  8. STILNOX [Concomitant]
     Dosage: 1 DF, PER DAY
     Route: 065
  9. VERSATIS [Concomitant]
     Dosage: 2 PATCHES PER DAY
     Route: 065
  10. INIPOMP [Concomitant]
     Indication: GASTROINTESTINAL DISORDER THERAPY
     Dosage: 20, 1DF PER DAY
     Route: 065
  11. DIPROSONE [Concomitant]
     Route: 065

REACTIONS (3)
  - Hypopituitarism [Recovering/Resolving]
  - Hypophysitis [Recovering/Resolving]
  - Weight increased [Recovering/Resolving]
